FAERS Safety Report 4888888-1 (Version None)
Quarter: 2006Q1

REPORT INFORMATION
  Report Type: 
  Country: None (occurrence: None)
  Receive Date: 20060123
  Receipt Date: 20060119
  Transmission Date: 20060701
  Serious: Yes (Hospitalization)
  Sender: FDA-Public Use
  Company Number: FR-MERCK-0601FRA00075

PATIENT
  Age: 83 Year
  Sex: Female

DRUGS (5)
  1. FOSAMAX [Suspect]
     Indication: OSTEOPOROSIS
     Route: 048
     Dates: start: 20051126, end: 20051203
  2. ACETAMINOPHEN [Concomitant]
     Indication: RHEUMATOID ARTHRITIS
     Route: 048
     Dates: start: 19950101
  3. OMEPRAZOLE [Concomitant]
     Indication: PROPHYLAXIS AGAINST GASTROINTESTINAL ULCER
     Route: 048
     Dates: start: 19950101
  4. METHOTREXATE [Concomitant]
     Indication: RHEUMATOID ARTHRITIS
     Route: 048
     Dates: start: 19950101, end: 20051206
  5. NADROPARIN CALCIUM [Concomitant]
     Indication: PHLEBITIS
     Route: 058
     Dates: start: 20051124, end: 20051206

REACTIONS (4)
  - ERYTHEMA [None]
  - FACE OEDEMA [None]
  - PRURITUS [None]
  - SKIN EXFOLIATION [None]
